FAERS Safety Report 24315968 (Version 1)
Quarter: 2024Q3

REPORT INFORMATION
  Report Type: Spontaneous
  Country: FR (occurrence: FR)
  Receive Date: 20240913
  Receipt Date: 20240913
  Transmission Date: 20241017
  Serious: Yes (Other)
  Sender: CHEPLAPHARM
  Company Number: None

PATIENT
  Age: 29 Year
  Sex: Male

DRUGS (5)
  1. CLONAZEPAM [Suspect]
     Active Substance: CLONAZEPAM
  2. ALCOHOL [Suspect]
     Active Substance: ALCOHOL
  3. OXAZEPAM [Suspect]
     Active Substance: OXAZEPAM
  4. COCAINE [Suspect]
     Active Substance: COCAINE
  5. OXAZEPAM [Suspect]
     Active Substance: OXAZEPAM

REACTIONS (6)
  - Somnolence [Recovered/Resolved]
  - Altered state of consciousness [Recovered/Resolved]
  - Miosis [Recovered/Resolved]
  - Drug use disorder [Unknown]
  - Behaviour disorder [Recovered/Resolved]
  - Agitation [Recovered/Resolved]

NARRATIVE: CASE EVENT DATE: 20240403
